FAERS Safety Report 8838010 (Version 1)
Quarter: 2012Q4

REPORT INFORMATION
  Report Type: 
  Country: US (occurrence: US)
  Receive Date: 20121012
  Receipt Date: 20121012
  Transmission Date: 20130627
  Serious: No
  Sender: FDA-Public Use
  Company Number: US-BAYER-2012-106952

PATIENT
  Age: 62 Year
  Sex: Female

DRUGS (1)
  1. MAGNEVIST [Suspect]
     Indication: NUCLEAR MAGNETIC RESONANCE IMAGING BRAIN
     Dosage: 18 ml, ONCE
     Route: 042
     Dates: start: 20121011, end: 20121011

REACTIONS (2)
  - Lip swelling [None]
  - Paraesthesia mucosal [None]
